FAERS Safety Report 4642989-1 (Version None)
Quarter: 2005Q2

REPORT INFORMATION
  Report Type: 
  Country: None (occurrence: None)
  Receive Date: 20050421
  Receipt Date: 20050411
  Transmission Date: 20051028
  Serious: Yes (Other)
  Sender: FDA-Public Use
  Company Number: 2005057594

PATIENT
  Age: 59 Year
  Sex: Female

DRUGS (4)
  1. BEXTRA [Suspect]
     Indication: OSTEOARTHRITIS
     Dosage: 40 MG (40 MG, 1 IN 1 D), ORAL
     Route: 048
     Dates: start: 20050401, end: 20050407
  2. PROMETHAZINE [Concomitant]
  3. HYOSCINE HBR HYT [Concomitant]
  4. HYDROCHLOROTHIAZIDE [Concomitant]

REACTIONS (8)
  - ASTHENIA [None]
  - DERMATITIS ALLERGIC [None]
  - ERYTHEMA [None]
  - EYE PRURITUS [None]
  - MASS [None]
  - PAIN [None]
  - PRURITUS [None]
  - TREMOR [None]
